FAERS Safety Report 25339376 (Version 1)
Quarter: 2025Q2

REPORT INFORMATION
  Report Type: Spontaneous
  Country: FR (occurrence: FR)
  Receive Date: 20250521
  Receipt Date: 20250521
  Transmission Date: 20250717
  Serious: Yes (Death, Hospitalization, Other)
  Sender: CELLTRION
  Company Number: FR-ROCHE-10000033530

PATIENT

DRUGS (8)
  1. BEVACIZUMAB [Suspect]
     Active Substance: BEVACIZUMAB
     Indication: Non-small cell lung cancer
     Route: 065
     Dates: start: 20240430
  2. PACLITAXEL [Suspect]
     Active Substance: PACLITAXEL
     Indication: Non-small cell lung cancer
     Route: 065
     Dates: start: 20240430
  3. ATEZOLIZUMAB [Concomitant]
     Active Substance: ATEZOLIZUMAB
     Indication: Non-small cell lung cancer
     Route: 065
     Dates: start: 20240430
  4. ELIQUIS [Concomitant]
     Active Substance: APIXABAN
  5. VERAPAMIL [Concomitant]
     Active Substance: VERAPAMIL HYDROCHLORIDE
  6. PRAVASTATIN SODIUM [Concomitant]
     Active Substance: PRAVASTATIN SODIUM
  7. CANDESARTAN [Concomitant]
     Active Substance: CANDESARTAN
  8. APIXABAN [Concomitant]
     Active Substance: APIXABAN

REACTIONS (2)
  - Malignant neoplasm progression [Fatal]
  - Embolism arterial [Recovered/Resolved with Sequelae]

NARRATIVE: CASE EVENT DATE: 20240718
